FAERS Safety Report 11620060 (Version 13)
Quarter: 2021Q4

REPORT INFORMATION
  Report Type: Report from Study
  Country: US (occurrence: US)
  Receive Date: 20151012
  Receipt Date: 20211221
  Transmission Date: 20220303
  Serious: Yes (Other)
  Sender: FDA-Public Use
  Company Number: PHEH2015US019557

PATIENT
  Age: 37 Year
  Sex: Female
  Weight: 63.5 kg

DRUGS (15)
  1. GILENYA [Suspect]
     Active Substance: FINGOLIMOD HYDROCHLORIDE
     Indication: Relapsing-remitting multiple sclerosis
     Dosage: 0.5 MG, QD
     Route: 048
     Dates: start: 201404, end: 20150828
  2. GILENYA [Suspect]
     Active Substance: FINGOLIMOD HYDROCHLORIDE
     Dosage: 0.5 MG, QD
     Route: 048
     Dates: end: 20151115
  3. GILENYA [Suspect]
     Active Substance: FINGOLIMOD HYDROCHLORIDE
     Dosage: 0.5 MG, QD
     Route: 048
     Dates: start: 20170315
  4. FOLIC ACID [Concomitant]
     Active Substance: FOLIC ACID
     Indication: Product used for unknown indication
     Dosage: 1 UG, QD
     Route: 048
     Dates: start: 20150915
  5. MAGNESIUM [Concomitant]
     Active Substance: MAGNESIUM
     Indication: Routine health maintenance
     Dosage: 1 DOSAGE FORM, QD
     Route: 048
     Dates: start: 2012, end: 20150927
  6. FISH OIL [Concomitant]
     Active Substance: FISH OIL
     Indication: Routine health maintenance
     Dosage: 1 DOSAGE FORM, QD
     Route: 048
     Dates: start: 2012, end: 20150927
  7. VITAMIN B12 [Concomitant]
     Active Substance: CYANOCOBALAMIN
     Indication: Routine health maintenance
     Dosage: 1 DOSAGE FORM, QD
     Route: 048
     Dates: start: 2012, end: 20150927
  8. DUET DHA [Concomitant]
     Active Substance: .ALPHA.-TOCOPHEROL ACETATE, D-\ASCORBIC ACID\BETA CAROTENE\CALCIUM CARBONATE\CHOLECALCIFEROL\CUPRIC
     Indication: Product used for unknown indication
     Dosage: 1 DOSAGE FORM
     Route: 048
     Dates: start: 201508
  9. VITAMIN D [Concomitant]
     Active Substance: VITAMIN D NOS
     Indication: Multiple sclerosis
     Dosage: 5000 IU, QD
     Route: 048
     Dates: start: 201209
  10. VITAMIN D [Concomitant]
     Active Substance: VITAMIN D NOS
     Dosage: 2 DF (2000/U), QD
     Route: 048
  11. COENZYME R [Concomitant]
     Indication: Routine health maintenance
     Dosage: 1 DOSAGE FORM, QD
     Route: 048
     Dates: start: 20150927
  12. COENZYME R [Concomitant]
     Dosage: UNK, QW
     Route: 065
  13. BIOTIN [Concomitant]
     Active Substance: BIOTIN
     Indication: Routine health maintenance
     Dosage: 1 DOSAGE FORM, QD
     Route: 048
     Dates: start: 201206, end: 20150927
  14. BIOTIN [Concomitant]
     Active Substance: BIOTIN
     Dosage: QW
     Route: 048
  15. VITAMINS [Concomitant]
     Active Substance: VITAMINS
     Indication: Product used for unknown indication
     Dosage: 1 DF, QD
     Route: 048
     Dates: start: 20151025

REACTIONS (5)
  - Oligohydramnios [Unknown]
  - Maternal exposure during pregnancy [Unknown]
  - Delivery [Unknown]
  - Induced labour [Unknown]
  - Normal newborn [Unknown]

NARRATIVE: CASE EVENT DATE: 20160101
